FAERS Safety Report 4428248-0 (Version None)
Quarter: 2004Q3

REPORT INFORMATION
  Report Type: 
  Country: None (occurrence: None)
  Receive Date: 20040813
  Receipt Date: 20040729
  Transmission Date: 20050211
  Serious: Yes (Hospitalization)
  Sender: FDA-Public Use
  Company Number: 04P-044-0268660-00

PATIENT
  Age: 50 Year
  Sex: Female

DRUGS (5)
  1. HUMIRA [Suspect]
     Indication: RHEUMATOID ARTHRITIS
     Dosage: 40 MG,  1 IN 2 WK, SUBCUTANEOUS
     Route: 057
     Dates: start: 20010403, end: 20040716
  2. ACETAMINOPHEN [Concomitant]
  3. COFFEINFACZON [Concomitant]
  4. HYDROXYZINE HYDROCHLORIDE [Concomitant]
  5. CLOBETASOL PROPIONATE [Concomitant]

REACTIONS (2)
  - CONDITION AGGRAVATED [None]
  - ECZEMA [None]
